FAERS Safety Report 15574496 (Version 1)
Quarter: 2018Q4

REPORT INFORMATION
  Report Type: Other
  Country: ES (occurrence: ES)
  Receive Date: 20181101
  Receipt Date: 20181101
  Transmission Date: 20190205
  Serious: Yes (Death, Hospitalization, Other)
  Sender: FDA-Public Use
  Company Number: ES-APOTEX-2018AP023601

PATIENT
  Age: 44 Year
  Sex: Female

DRUGS (2)
  1. PARACETAMOL [Suspect]
     Active Substance: ACETAMINOPHEN
     Indication: INTENTIONAL OVERDOSE
     Dosage: 7 G, IN TOTAL TOTAL 1
     Route: 048
     Dates: start: 20170411, end: 20170411
  2. LORATADINE. [Concomitant]
     Active Substance: LORATADINE
     Indication: INTENTIONAL OVERDOSE
     Dosage: UNK, QD (IN TOTAL)
     Route: 048
     Dates: start: 20170411, end: 20170411

REACTIONS (2)
  - Hepatitis [Fatal]
  - Intentional overdose [Fatal]

NARRATIVE: CASE EVENT DATE: 20170411
